FAERS Safety Report 7605533-2 (Version None)
Quarter: 2011Q3

REPORT INFORMATION
  Report Type: 
  Country: None (occurrence: None)
  Receive Date: 20110712
  Receipt Date: 20110712
  Transmission Date: 20111222
  Serious: Yes (Hospitalization)
  Sender: FDA-Public Use
  Company Number: None

PATIENT
  Age: 70 Year
  Sex: Female
  Weight: 62.8 kg

DRUGS (2)
  1. NAPROXEN [Suspect]
     Indication: PAIN
     Dosage: 220 MG PRN PO
     Route: 048
     Dates: start: 20110202, end: 20110414
  2. MESALAMINE [Suspect]
     Indication: COLITIS ULCERATIVE
     Dosage: 11000 MG BID RECTAL
     Route: 054
     Dates: start: 20101219, end: 20110414

REACTIONS (3)
  - DIALYSIS [None]
  - RENAL FAILURE ACUTE [None]
  - BLOOD POTASSIUM INCREASED [None]
